FAERS Safety Report 6467099-2 (Version None)
Quarter: 2009Q4

REPORT INFORMATION
  Report Type: 
  Country: None (occurrence: None)
  Receive Date: 20091202
  Receipt Date: 20091123
  Transmission Date: 20100525
  Serious: Yes (Hospitalization, Other)
  Sender: FDA-Public Use
  Company Number: US-PFIZER INC-2009235824

PATIENT
  Sex: Female
  Weight: 86.182 kg

DRUGS (2)
  1. AZITHROMYCIN [Suspect]
     Indication: TOOTH INFECTION
     Dosage: 250 MG, 1X/DAY
     Route: 048
     Dates: start: 20081212, end: 20081216
  2. LIDOCAINE AND EPINEPHRINE [Concomitant]
     Indication: TOOTH EXTRACTION
     Dosage: UNK
     Dates: start: 20081217

REACTIONS (14)
  - CATARACT TRAUMATIC [None]
  - CERVICAL VERTEBRAL FRACTURE [None]
  - CONCUSSION [None]
  - CONTUSION [None]
  - EYE PENETRATION [None]
  - HEART INJURY [None]
  - HEART RATE IRREGULAR [None]
  - LACERATION [None]
  - MUSCLE INJURY [None]
  - NERVE INJURY [None]
  - PARALYTIC DISABILITY [None]
  - ROAD TRAFFIC ACCIDENT [None]
  - SYNCOPE [None]
  - VENTRICULAR TACHYCARDIA [None]
